FAERS Safety Report 5861725-4 (Version None)
Quarter: 2008Q3

REPORT INFORMATION
  Report Type: 
  Country: None (occurrence: None)
  Receive Date: 20080827
  Receipt Date: 20080625
  Transmission Date: 20090109
  Serious: No
  Sender: FDA-Public Use
  Company Number: US-ABBOTT-08P-163-0459518-00

PATIENT
  Sex: Male

DRUGS (1)
  1. COATED PDS [Suspect]
     Indication: BLOOD TRIGLYCERIDES INCREASED
     Dosage: 500MG AT BEDTIME
     Route: 048
     Dates: start: 20080601

REACTIONS (4)
  - ERYTHEMA [None]
  - FEELING HOT [None]
  - PALPITATIONS [None]
  - PARAESTHESIA [None]
